FAERS Safety Report 17186577 (Version 2)
Quarter: 2020Q1

REPORT INFORMATION
  Report Type: Spontaneous
  Country: DE (occurrence: DE)
  Receive Date: 20191220
  Receipt Date: 20200122
  Transmission Date: 20200409
  Serious: Yes (Other)
  Sender: FDA-Public Use
  Company Number: DE-ASTRAZENECA-2019SF82654

PATIENT
  Age: 512 Month
  Sex: Female
  Weight: 70 kg

DRUGS (1)
  1. FASENRA [Suspect]
     Active Substance: BENRALIZUMAB
     Indication: ASTHMA
     Dosage: 30.0MG UNKNOWN
     Route: 058
     Dates: start: 20191104

REACTIONS (6)
  - Asthma [Recovered/Resolved]
  - Lung infiltration [Recovered/Resolved with Sequelae]
  - Blood immunoglobulin E increased [Not Recovered/Not Resolved]
  - Pulmonary hilar enlargement [Unknown]
  - Pulmonary mass [Not Recovered/Not Resolved]
  - Cough [Recovered/Resolved with Sequelae]

NARRATIVE: CASE EVENT DATE: 201911
